FAERS Safety Report 19906149 (Version 1)
Quarter: 2021Q4

REPORT INFORMATION
  Report Type: Spontaneous
  Country: CA (occurrence: CA)
  Receive Date: 20211001
  Receipt Date: 20211001
  Transmission Date: 20220304
  Serious: Yes (Other)
  Sender: FDA-Public Use
  Company Number: CA-TEVA-2021-CA-1959646

PATIENT
  Age: 59 Year
  Sex: Male

DRUGS (5)
  1. PROPOFOL [Interacting]
     Active Substance: PROPOFOL
     Indication: Sedation
     Route: 065
  2. DEXAMETHASONE [Interacting]
     Active Substance: DEXAMETHASONE
     Indication: Enzyme induction
     Route: 065
  3. LOPINAVIR\RITONAVIR [Interacting]
     Active Substance: LOPINAVIR\RITONAVIR
     Indication: COVID-19
     Route: 048
  4. LOPINAVIR\RITONAVIR [Interacting]
     Active Substance: LOPINAVIR\RITONAVIR
     Route: 048
  5. SOTALOL [Interacting]
     Active Substance: SOTALOL
     Indication: Atrial fibrillation
     Route: 065

REACTIONS (8)
  - Bradycardia [Unknown]
  - Cholecystitis [Unknown]
  - Drug interaction [Unknown]
  - Drug level increased [Unknown]
  - Food interaction [Unknown]
  - Hypertriglyceridaemia [Unknown]
  - Overdose [Unknown]
  - Off label use [Unknown]
